FAERS Safety Report 14939762 (Version 2)
Quarter: 2018Q3

REPORT INFORMATION
  Report Type: Report from Study
  Country: IT (occurrence: IT)
  Receive Date: 20180525
  Receipt Date: 20180711
  Transmission Date: 20181010
  Serious: Yes (Other)
  Sender: FDA-Public Use
  Company Number: IT-PFIZER INC-2018209932

PATIENT
  Age: 65 Year
  Sex: Female

DRUGS (3)
  1. INOTUZUMAB OZOGAMICIN [Suspect]
     Active Substance: INOTUZUMAB OZOGAMICIN
     Indication: ACUTE LYMPHOCYTIC LEUKAEMIA
     Dosage: 1.3 MG, WEEKLY
     Route: 042
     Dates: start: 20180328, end: 20180504
  2. HALDOL [Suspect]
     Active Substance: HALOPERIDOL
     Indication: VASCULAR DEMENTIA
     Dosage: 6 GTT, DAILY
     Route: 048
  3. VFEND [Suspect]
     Active Substance: VORICONAZOLE
     Indication: INFECTION PROPHYLAXIS
     Dosage: 400 MG, DAILY
     Route: 048
     Dates: start: 20180405, end: 20180512

REACTIONS (1)
  - Hyperbilirubinaemia [Not Recovered/Not Resolved]

NARRATIVE: CASE EVENT DATE: 20180510
